FAERS Safety Report 19063556 (Version 1)
Quarter: 2021Q1

REPORT INFORMATION
  Report Type: Report from Study
  Country: PE (occurrence: PE)
  Receive Date: 20210326
  Receipt Date: 20210326
  Transmission Date: 20210420
  Serious: Yes (Death, Hospitalization, Other)
  Sender: FDA-Public Use
  Company Number: PE-SEATTLE GENETICS-2019SGN01645

PATIENT
  Sex: Male

DRUGS (1)
  1. BRENTUXIMAB VEDOTIN [Suspect]
     Active Substance: BRENTUXIMAB VEDOTIN
     Indication: HODGKIN^S DISEASE
     Dosage: 146 MILLIGRAM
     Route: 042
     Dates: start: 20190406

REACTIONS (9)
  - Vomiting [Recovered/Resolved]
  - Death [Fatal]
  - Arthralgia [Unknown]
  - Cellulitis [Unknown]
  - Nausea [Recovered/Resolved]
  - Platelet count decreased [Unknown]
  - Hypoaesthesia [Unknown]
  - Pneumonia [Unknown]
  - Haemoglobin decreased [Unknown]
